FAERS Safety Report 23795991 (Version 1)
Quarter: 2024Q2

REPORT INFORMATION
  Report Type: Spontaneous
  Country: US (occurrence: US)
  Receive Date: 20240429
  Receipt Date: 20240429
  Transmission Date: 20240716
  Serious: No
  Sender: FDA-Public Use
  Company Number: US-BIOGEN-2024BI01245160

PATIENT
  Sex: Male

DRUGS (2)
  1. SKYCLARYS [Suspect]
     Active Substance: OMAVELOXOLONE
     Indication: Friedreich^s ataxia
     Route: 050
     Dates: start: 20230908
  2. SKYCLARYS [Suspect]
     Active Substance: OMAVELOXOLONE
     Route: 050
     Dates: start: 20230908

REACTIONS (5)
  - Muscle spasms [Unknown]
  - Muscle fatigue [Unknown]
  - Asthenia [Unknown]
  - Product dose omission issue [Unknown]
  - Dehydration [Unknown]

NARRATIVE: CASE EVENT DATE: 20230101
